FAERS Safety Report 17655722 (Version 1)
Quarter: 2020Q2

REPORT INFORMATION
  Report Type: Spontaneous
  Country: US (occurrence: US)
  Receive Date: 20200409
  Receipt Date: 20200409
  Transmission Date: 20200713
  Serious: No
  Sender: FDA-Public Use
  Company Number: None

PATIENT
  Age: 77 Year

DRUGS (1)
  1. IBRANCE [Suspect]
     Active Substance: PALBOCICLIB
     Dosage: ?          OTHER FREQUENCY:OTHER;OTHER ROUTE:OTHER?
     Dates: start: 202002, end: 202003

REACTIONS (1)
  - Malaise [None]

NARRATIVE: CASE EVENT DATE: 20200409
